FAERS Safety Report 10372299 (Version 2)
Quarter: 2014Q3

REPORT INFORMATION
  Report Type: Spontaneous
  Country: US (occurrence: US)
  Receive Date: 20140808
  Receipt Date: 20140808
  Transmission Date: 20150326
  Serious: Yes (Hospitalization, Other)
  Sender: FDA-Public Use
  Company Number: PHHY2014US093675

PATIENT
  Age: 56 Year
  Sex: Female

DRUGS (36)
  1. VITAMIN D3 [Suspect]
     Active Substance: CHOLECALCIFEROL
     Dosage: 400 UNITS/5ML
  2. PRILOSEC [Suspect]
     Active Substance: OMEPRAZOLE MAGNESIUM
     Dosage: UNK UKN, UNK
  3. RANITIDINE HYDROCHLORIDE. [Suspect]
     Active Substance: RANITIDINE HYDROCHLORIDE
     Dosage: UNK UKN, UNK
  4. DEMADEX [Suspect]
     Active Substance: TORSEMIDE
     Dosage: UNK UKN, UNK
  5. POTASSIUM CHLORIDE. [Suspect]
     Active Substance: POTASSIUM CHLORIDE
     Dosage: UNK UKN, UNK
  6. POLYETHYLENE GLYCOL [Suspect]
     Active Substance: POLYETHYLENE GLYCOLS
     Dosage: UNK UKN, UNK
  7. BACLOFEN INTRATHECAL [Suspect]
     Active Substance: BACLOFEN
     Indication: MUSCLE SPASTICITY
     Dosage: 330.3 UG, QD
     Route: 037
  8. PROVENTIL [Suspect]
     Active Substance: ALBUTEROL
     Dosage: UNK UKN, UNK
     Route: 045
  9. BENADRYL ALLERGY [Suspect]
     Active Substance: DIPHENHYDRAMINE HYDROCHLORIDE
     Dosage: 12.5MG/5ML
  10. EUCERIN /01160201/ [Suspect]
     Active Substance: LANOLIN\MINERAL OIL\PETROLATUM
     Dosage: UNK UKN, UNK
  11. ASPIRIN. [Suspect]
     Active Substance: ASPIRIN
     Dosage: UNK UKN, UNK
  12. DILAUDID [Suspect]
     Active Substance: HYDROMORPHONE HYDROCHLORIDE
     Dosage: UNK UKN, UNK
  13. LIDODERM [Suspect]
     Active Substance: LIDOCAINE
     Dosage: 700MG/PATCH
  14. OXYCODONE [Suspect]
     Active Substance: OXYCODONE
     Dosage: UNK UKN, UNK
  15. RISPERDAL [Suspect]
     Active Substance: RISPERIDONE
     Dosage: UNK UKN, UNK
  16. BACITRACIN. [Suspect]
     Active Substance: BACITRACIN
     Dosage: UNK UKN, UNK
  17. SARNA [Suspect]
     Active Substance: CAMPHOR (NATURAL)\MENTHOL\PRAMOXINE HYDROCHLORIDE
     Dosage: UNK UKN, UNK
  18. LEVOXYL [Suspect]
     Active Substance: LEVOTHYROXINE SODIUM
     Dosage: UNK UKN, UNK
  19. ZOLOFT [Suspect]
     Active Substance: SERTRALINE HYDROCHLORIDE
     Dosage: UNK UKN, UNK
  20. GLYCOLAX [Suspect]
     Active Substance: POLYETHYLENE GLYCOL 3350
     Dosage: UNK UKN, UNK
  21. LIORESAL [Suspect]
     Active Substance: BACLOFEN
     Indication: MUSCLE SPASTICITY
     Dosage: 10 MG, UNK
  22. MYCOSTATIN [Suspect]
     Active Substance: NYSTATIN
     Dosage: UNK UKN, UNK
  23. OCEAN SALINE NASAL SPRAY [Suspect]
     Active Substance: SODIUM CHLORIDE
     Dosage: UNK UKN, UNK
     Route: 045
  24. GEODON [Suspect]
     Active Substance: ZIPRASIDONE HYDROCHLORIDE\ZIPRASIDONE MESYLATE
     Dosage: UNK UKN, UNK
  25. MIRALAX [Suspect]
     Active Substance: POLYETHYLENE GLYCOL 3350
     Dosage: UNK UKN, UNK
  26. PARACETAMOL [Suspect]
     Active Substance: ACETAMINOPHEN
     Dosage: 160MG/5ML
     Route: 048
  27. CALCIUM CARBONATE. [Suspect]
     Active Substance: CALCIUM CARBONATE
     Dosage: UNK UKN, UNK
  28. COLACE [Suspect]
     Active Substance: DOCUSATE SODIUM
     Dosage: UNK UKN, UNK
  29. FLONASE [Suspect]
     Active Substance: FLUTICASONE PROPIONATE
     Dosage: 250MG/5ML
     Route: 045
  30. NEURONTIN [Suspect]
     Active Substance: GABAPENTIN
     Dosage: UNK UKN, UNK
  31. NIZORAL [Suspect]
     Active Substance: KETOCONAZOLE
     Dosage: UNK UKN, UNK
     Route: 061
  32. REGLAN [Suspect]
     Active Substance: METOCLOPRAMIDE HYDROCHLORIDE
     Dosage: 5MG/5ML
  33. DITROPAN [Suspect]
     Active Substance: OXYBUTYNIN CHLORIDE
     Dosage: UNK UKN, UNK
  34. SYSTANE [Suspect]
     Active Substance: HYPROMELLOSE 2910 (4000 MPA.S)
     Dosage: UNK UKN, UNK
  35. PULMICORT TURBUHALER [Suspect]
     Active Substance: BUDESONIDE
     Dosage: 0.25MG/2ML
  36. ZOFRAN [Suspect]
     Active Substance: ONDANSETRON HYDROCHLORIDE
     Dosage: 4MG/5ML

REACTIONS (32)
  - Therapeutic response changed [Unknown]
  - Repetitive strain injury [Unknown]
  - Faecal incontinence [Unknown]
  - Carpal tunnel syndrome [Unknown]
  - Abdominal pain [Unknown]
  - Dysphagia [Unknown]
  - Neck pain [Unknown]
  - Asthenia [Unknown]
  - Hypoaesthesia [Unknown]
  - Hypoxia [Unknown]
  - Hypothyroidism [Unknown]
  - Muscle spasms [Unknown]
  - Bacterial disease carrier [Unknown]
  - Neurogenic bladder [Unknown]
  - Lymphoedema [Unknown]
  - Chronic respiratory failure [Unknown]
  - Arthropathy [Unknown]
  - Pyrexia [Unknown]
  - Unevaluable event [Unknown]
  - Nerve compression [Unknown]
  - Enterobacter infection [Unknown]
  - Neuropathy peripheral [Unknown]
  - Decubitus ulcer [Unknown]
  - Bronchiectasis [Unknown]
  - Depression [Unknown]
  - Hypertonia [Unknown]
  - Osteonecrosis [Unknown]
  - Back pain [Unknown]
  - Pneumonia aspiration [Unknown]
  - Implant site erosion [Unknown]
  - Urinary tract infection bacterial [Unknown]
  - Muscular weakness [Unknown]

NARRATIVE: CASE EVENT DATE: 20140703
